FAERS Safety Report 23878017 (Version 2)
Quarter: 2024Q2

REPORT INFORMATION
  Report Type: Spontaneous
  Country: CN (occurrence: CN)
  Receive Date: 20240521
  Receipt Date: 20240601
  Transmission Date: 20240717
  Serious: Yes (Life-Threatening, Hospitalization, Other)
  Sender: FDA-Public Use
  Company Number: CN-Accord-424971

PATIENT
  Age: 54 Year
  Sex: Male

DRUGS (6)
  1. MYCOPHENOLATE MOFETIL [Suspect]
     Active Substance: MYCOPHENOLATE MOFETIL
     Indication: Immunosuppressant drug therapy
     Dosage: 1 CAPSULE TID
     Dates: start: 2011, end: 2022
  2. TACROLIMUS [Suspect]
     Active Substance: TACROLIMUS
     Indication: Immunosuppressant drug therapy
     Dosage: 1 MG QM
     Dates: start: 2011
  3. PREDNISONE [Suspect]
     Active Substance: PREDNISONE
     Indication: Immunosuppressant drug therapy
     Dosage: 2 TABLETS QD
     Dates: start: 2011
  4. ADEFOVIR DIPIVOXIL [Concomitant]
     Active Substance: ADEFOVIR DIPIVOXIL
     Indication: Hepatitis B
  5. MYCOPHENOLATE MOFETIL [Suspect]
     Active Substance: MYCOPHENOLATE MOFETIL
     Indication: Immunosuppressant drug therapy
     Dosage: 1 CAPSULE QD
  6. TACROLIMUS [Suspect]
     Active Substance: TACROLIMUS
     Indication: Immunosuppressant drug therapy
     Dosage: 0.5 MG QN

REACTIONS (18)
  - Penicillium infection [Unknown]
  - Hepatic encephalopathy [Unknown]
  - Gastrointestinal perforation [Unknown]
  - Peritonitis [Unknown]
  - Acute respiratory failure [Unknown]
  - Multiple organ dysfunction syndrome [Unknown]
  - Shock [Unknown]
  - Gastrointestinal haemorrhage [Unknown]
  - Burkholderia cepacia complex infection [Unknown]
  - Parvovirus infection [Unknown]
  - Enterobacter infection [Unknown]
  - Herpes virus infection [Unknown]
  - Cytomegalovirus infection [Unknown]
  - Pseudomonas infection [Unknown]
  - Soft tissue infection [Unknown]
  - Epstein-Barr virus infection [Unknown]
  - Arthritis bacterial [Unknown]
  - Necrotising fasciitis [Unknown]

NARRATIVE: CASE EVENT DATE: 20220101
